FAERS Safety Report 16193167 (Version 1)
Quarter: 2019Q2

REPORT INFORMATION
  Report Type: Spontaneous
  Country: FR (occurrence: FR)
  Receive Date: 20190413
  Receipt Date: 20190413
  Transmission Date: 20190711
  Serious: Yes (Hospitalization)
  Sender: FDA-Public Use
  Company Number: FR-TEVA-2019-FR-1036427

PATIENT
  Age: 82 Year
  Sex: Male
  Weight: 65.5 kg

DRUGS (7)
  1. ADRIBLASTINE [Suspect]
     Active Substance: DOXORUBICIN
     Indication: CHRONIC LYMPHOCYTIC LEUKAEMIA
     Dosage: J1/CURE
     Route: 042
     Dates: start: 20000208, end: 20020122
  2. ENDOXAN [Suspect]
     Active Substance: CYCLOPHOSPHAMIDE
     Indication: CHRONIC LYMPHOCYTIC LEUKAEMIA
     Dosage: J1 TO J5/CURE
     Route: 042
     Dates: start: 20000208, end: 20020122
  3. FLUDARABINE (PHOSPHATE DE) [Suspect]
     Active Substance: FLUDARABINE PHOSPHATE
     Indication: CHRONIC LYMPHOCYTIC LEUKAEMIA
     Dosage: J2 TO J4/CURE
     Route: 042
     Dates: start: 20071119, end: 20080414
  4. ONCOVIN [Suspect]
     Active Substance: VINCRISTINE SULFATE
     Indication: CHRONIC LYMPHOCYTIC LEUKAEMIA
     Dosage: J1/CURE
     Route: 042
     Dates: start: 20000208, end: 20020122
  5. MABTHERA [Suspect]
     Active Substance: RITUXIMAB
     Indication: CHRONIC LYMPHOCYTIC LEUKAEMIA
     Dosage: J1/CURE
     Route: 042
     Dates: start: 20071119, end: 20080414
  6. ENDOXAN [Suspect]
     Active Substance: CYCLOPHOSPHAMIDE
     Dosage: J1 TO J5/CURE
     Route: 042
     Dates: start: 20071119, end: 20080414
  7. SOLU-MEDROL [Concomitant]
     Active Substance: METHYLPREDNISOLONE SODIUM SUCCINATE
     Indication: CHRONIC LYMPHOCYTIC LEUKAEMIA
     Dosage: J1
     Route: 042
     Dates: start: 20000208, end: 20020122

REACTIONS (2)
  - Ejection fraction decreased [Recovering/Resolving]
  - Cardiac failure [Recovering/Resolving]

NARRATIVE: CASE EVENT DATE: 20190220
